FAERS Safety Report 8811534 (Version 1)
Quarter: 2012Q4

REPORT INFORMATION
  Report Type: Report from Study
  Country: US (occurrence: US)
  Receive Date: 20120927
  Receipt Date: 20120927
  Transmission Date: 20130627
  Serious: Yes (Hospitalization)
  Sender: FDA-Public Use
  Company Number: US-JNJFOC-20120911148

PATIENT
  Age: 12 Year
  Sex: Female
  Weight: 36.4 kg

DRUGS (2)
  1. REMICADE [Suspect]
     Indication: CROHN^S DISEASE
     Route: 042
     Dates: start: 20101105
  2. ANTIBIOTICS FOR IBD [Concomitant]

REACTIONS (2)
  - Proctalgia [Recovered/Resolved]
  - Abnormal loss of weight [Recovered/Resolved]
